FAERS Safety Report 5897217-6 (Version None)
Quarter: 2008Q3

REPORT INFORMATION
  Report Type: 
  Country: None (occurrence: None)
  Receive Date: 20080923
  Receipt Date: 20080909
  Transmission Date: 20090109
  Serious: Yes (Other)
  Sender: FDA-Public Use
  Company Number: B0537348A

PATIENT
  Age: 38 Year
  Sex: Female

DRUGS (3)
  1. LAMIVUDINE [Suspect]
     Indication: HIV INFECTION
  2. TENOFOVIR DISOPROXIL FUMARATE [Suspect]
     Indication: HIV INFECTION
  3. SAQUINAVIR + RITONAVIR (FORMULATION UNKNOWN) (SAQUINAVIR + RITONAVIR) [Suspect]
     Indication: HIV INFECTION

REACTIONS (2)
  - IMMUNE RECONSTITUTION SYNDROME [None]
  - ROSACEA [None]
